FAERS Safety Report 10450166 (Version 3)
Quarter: 2015Q4

REPORT INFORMATION
  Report Type: Spontaneous
  Country: US (occurrence: US)
  Receive Date: 20140912
  Receipt Date: 20151110
  Transmission Date: 20160304
  Serious: Yes (Other)
  Sender: FDA-Public Use
  Company Number: US-PFIZER INC-2014250109

PATIENT
  Age: 57 Year
  Sex: Female
  Weight: 136 kg

DRUGS (6)
  1. LIPITOR [Suspect]
     Active Substance: ATORVASTATIN CALCIUM
     Dosage: UNK
     Dates: start: 2008
  2. LIPITOR [Suspect]
     Active Substance: ATORVASTATIN CALCIUM
     Indication: BLOOD CHOLESTEROL INCREASED
     Dosage: UNK, 2X/DAY
     Dates: start: 2000, end: 2010
  3. ATIVAN [Concomitant]
     Active Substance: LORAZEPAM
     Indication: ANXIETY
     Dosage: UNK
  4. LIPITOR [Suspect]
     Active Substance: ATORVASTATIN CALCIUM
     Dosage: UNK, 1X/DAY
  5. QUETIAPINE [Concomitant]
     Active Substance: QUETIAPINE
     Indication: ANXIETY
     Dosage: 50 MG, 2X/DAY
  6. PREDNISONE. [Suspect]
     Active Substance: PREDNISONE
     Dosage: 10-20 MG, TWO OR THREE TIMES A DAY
     Dates: start: 1990

REACTIONS (12)
  - Diabetes mellitus [Unknown]
  - Seizure [Unknown]
  - Oedema peripheral [Unknown]
  - Eye swelling [Unknown]
  - Hepatitis B [Not Recovered/Not Resolved]
  - Cerebrovascular accident [Unknown]
  - Back pain [Unknown]
  - Insomnia [Unknown]
  - Hallucination [Unknown]
  - Malaise [Unknown]
  - Dizziness [Unknown]
  - Anxiety [Unknown]

NARRATIVE: CASE EVENT DATE: 2008
